FAERS Safety Report 7740009-3 (Version None)
Quarter: 2011Q3

REPORT INFORMATION
  Report Type: 
  Country: None (occurrence: None)
  Receive Date: 20110909
  Receipt Date: 20110902
  Transmission Date: 20111222
  Serious: Yes (Hospitalization, Other)
  Sender: FDA-Public Use
  Company Number: US-PURDUE-USA-2011-0073288

PATIENT
  Sex: Female
  Weight: 67 kg

DRUGS (1)
  1. OXYCONTIN [Suspect]
     Indication: PRODUCT USED FOR UNKNOWN INDICATION
     Dosage: 160 MG, Q12H
     Route: 048
     Dates: start: 20100223, end: 20100323

REACTIONS (4)
  - HYPOTENSION [None]
  - INTENTIONAL DRUG MISUSE [None]
  - COMPLEX REGIONAL PAIN SYNDROME [None]
  - DRUG WITHDRAWAL SYNDROME [None]
